FAERS Safety Report 6124306-3 (Version None)
Quarter: 2009Q1

REPORT INFORMATION
  Report Type: 
  Country: None (occurrence: None)
  Receive Date: 20090317
  Receipt Date: 20090306
  Transmission Date: 20090719
  Serious: Yes (Hospitalization, Other)
  Sender: FDA-Public Use
  Company Number: 2009AP000960

PATIENT
  Age: 11 Year
  Sex: Male

DRUGS (11)
  1. VALPROIC ACID SYRUP [Suspect]
     Dosage: 250 MG; BID; 750 MG; 625 MG; QD
  2. RISPERIDONE [Suspect]
     Dosage: 1 MG; BID, 2 MG; QD, 3 MG, 2 MG; QD
  3. RISPERIDONE [Concomitant]
  4. HALOPERIDOL [Concomitant]
  5. TOMOXETINE [Concomitant]
  6. METHYLPHENIDATE HCL [Concomitant]
  7. LITHIUM CARBONATE [Concomitant]
  8. ARIPIPRAZOLE [Concomitant]
  9. DEXAMFETAMINE [Concomitant]
  10. LITHIUM CARBONATE [Concomitant]
  11. CHLORPROMAZINE [Concomitant]

REACTIONS (16)
  - AFFECT LABILITY [None]
  - AGGRESSION [None]
  - DISINHIBITION [None]
  - DRUG INEFFECTIVE [None]
  - DRUG INTERACTION [None]
  - HYPERAMMONAEMIA [None]
  - IMPULSIVE BEHAVIOUR [None]
  - INAPPROPRIATE AFFECT [None]
  - INSOMNIA [None]
  - IRRITABILITY [None]
  - MANIA [None]
  - NEGATIVISM [None]
  - PRESSURE OF SPEECH [None]
  - PSYCHOMOTOR HYPERACTIVITY [None]
  - TREATMENT NONCOMPLIANCE [None]
  - VOMITING [None]
